FAERS Safety Report 8617326-8 (Version None)
Quarter: 2012Q3

REPORT INFORMATION
  Report Type: 
  Country: None (occurrence: None)
  Receive Date: 20120823
  Receipt Date: 20120813
  Transmission Date: 20120928
  Serious: No
  Sender: FDA-Public Use
  Company Number: US-009507513-1208USA006068

PATIENT

DRUGS (3)
  1. PROVENTIL [Suspect]
     Indication: BRONCHITIS CHRONIC
     Dosage: UNK, PRN
  2. PROVENTIL [Suspect]
     Indication: ASTHMA
     Dosage: UNK, PRN
  3. PROVENTIL [Suspect]
     Indication: EMPHYSEMA
     Dosage: UNK, PRN
     Dates: start: 20080801

REACTIONS (2)
  - WHEEZING [None]
  - PRODUCT QUALITY ISSUE [None]
